FAERS Safety Report 6822196-4 (Version None)
Quarter: 2010Q3

REPORT INFORMATION
  Report Type: 
  Country: None (occurrence: None)
  Receive Date: 20100702
  Receipt Date: 20100625
  Transmission Date: 20110219
  Serious: Yes (Death, Life-Threatening)
  Sender: FDA-Public Use
  Company Number: 2010JP000706

PATIENT
  Age: 80 Year
  Sex: Female
  Weight: 38.4 kg

DRUGS (16)
  1. DORMICUM (MIDAZOLAM) INJECTION, 10 MG [Suspect]
     Indication: ACUTE RESPIRATORY DISTRESS SYNDROME
     Dosage: MG, CONTINUOUS,IV DRIP
     Route: 041
     Dates: start: 20091229, end: 20100119
  2. FUNGUARD (MICAFUNGIN) INJECTION [Suspect]
     Indication: PNEUMONIA
     Dosage: 150 MG, UID/QD, IV DRIP
     Route: 041
     Dates: start: 20100102, end: 20100115
  3. MEROPENEM [Suspect]
     Indication: PNEUMONIA
     Dosage: 0.5 G, TID, IV DRIP
     Route: 041
     Dates: start: 20091231, end: 20100113
  4. CLINDAMYCIN [Suspect]
     Indication: PNEUMONIA
     Dosage: 600 MG, TID, IV DRIP
     Route: 041
     Dates: start: 20091231, end: 20100113
  5. ELASPOL (SIVELESTAT SODIUM) INJECTION [Suspect]
     Indication: ACUTE RESPIRATORY DISTRESS SYNDROME
     Dosage: 200 MG, CONTINUOUS, IV DRIP
     Route: 041
     Dates: start: 20100102, end: 20100115
  6. DOPAMINE HYDROCHLORIDE [Suspect]
     Indication: CARDIAC FAILURE
     Dosage: IV DRIP
     Route: 041
     Dates: start: 20100102, end: 20100119
  7. LASIX [Suspect]
     Indication: CARDIAC FAILURE
     Dosage: 20 MG, BID, IV NOS
     Route: 042
     Dates: start: 20091229
  8. SOLDACTONE (POTASSIUM CANRENOATE) INJECTION [Suspect]
     Indication: CARDIAC FAILURE
     Dosage: 100 MG, UID/QD, IV NOS
     Route: 042
     Dates: start: 20100102, end: 20100114
  9. SOLU-MEDROL [Suspect]
     Indication: ACUTE RESPIRATORY DISTRESS SYNDROME
     Dosage: 250 MG, BID, IV DRIP
     Route: 041
     Dates: start: 20100104, end: 20100106
  10. FOY (GABEXATE MESILATE) INJECTION [Suspect]
     Indication: ACUTE RESPIRATORY DISTRESS SYNDROME
     Dosage: 800 MG, CONTINUOUS, IV DRIP
     Route: 041
     Dates: start: 20100106, end: 20100109
  11. FOY (GABEXATE MESILATE) INJECTION [Suspect]
     Indication: DISSEMINATED INTRAVASCULAR COAGULATION
     Dosage: 800 MG, CONTINUOUS, IV DRIP
     Route: 041
     Dates: start: 20100106, end: 20100109
  12. PN TWIN (AMINO ACIDS NOS, CARBOHYDRATES NOS, ELECROLYTES NOS) [Concomitant]
  13. NEOLAMIN MULTI V (VITAMINS NOS) [Concomitant]
  14. DANTRIUM [Concomitant]
  15. MENESIT (CARBIDOPA, LEVODOPA) [Concomitant]
  16. THYRADIN (THYROID) [Concomitant]

REACTIONS (2)
  - ACUTE RESPIRATORY DISTRESS SYNDROME [None]
  - ALTERED STATE OF CONSCIOUSNESS [None]
